FAERS Safety Report 23462916 (Version 2)
Quarter: 2024Q1

REPORT INFORMATION
  Report Type: Spontaneous
  Country: US (occurrence: US)
  Receive Date: 20240131
  Receipt Date: 20240306
  Transmission Date: 20240409
  Serious: No
  Sender: FDA-Public Use
  Company Number: US-PFIZER INC-202400029264

PATIENT
  Age: 70 Year
  Sex: Female
  Weight: 65.32 kg

DRUGS (18)
  1. XELJANZ [Suspect]
     Active Substance: TOFACITINIB CITRATE
     Indication: Rheumatoid arthritis
     Dosage: 5MG BID
     Route: 048
     Dates: start: 201908
  2. METHOTREXATE SODIUM [Suspect]
     Active Substance: METHOTREXATE SODIUM
     Indication: Rheumatoid arthritis
     Dosage: 8TABS Q WK
     Route: 048
     Dates: start: 20220905
  3. ALBUTEROL SULFATE [Concomitant]
     Active Substance: ALBUTEROL SULFATE
     Indication: Wheezing
     Dosage: INHALE CONTENTS OF 1 AMPULE VIA HAND-HELD NEBULIZER EVERY 6 HOURS AS NEEDED FOR WHEEZING
  4. ALENDRONATE [Concomitant]
     Active Substance: ALENDRONATE SODIUM
     Dosage: 1 TABLET ONCE A WEEK. IN THE MORNING, FASTING, WITH 8 OUNCES OF WATER. STAY UPRIGHT AND DO NOT EAT F
  5. CLONAZEPAM [Concomitant]
     Active Substance: CLONAZEPAM
     Dosage: TAKE 1 TABLET(S) EVERY DAY BY ORAL ROUTE AT BEDTIME FOR 30 DAYS
     Route: 048
  6. CYCLOBENZAPRINE [Concomitant]
     Active Substance: CYCLOBENZAPRINE
     Indication: Back pain
     Dosage: TAKE 1 TABLET BY MOUTH AT BEDTIME AS NEEDED FOR LOWER BACK, LEG PAIN
     Route: 048
  7. CYCLOBENZAPRINE [Concomitant]
     Active Substance: CYCLOBENZAPRINE
     Indication: Pain in extremity
  8. VITAMIN D2 [Concomitant]
     Active Substance: ERGOCALCIFEROL
     Dosage: TAKE 1 CAPSULE(S) EVERY WEEK BY ORAL ROUTE FOR 84 DAYS.
     Route: 048
  9. GABAPENTIN [Concomitant]
     Active Substance: GABAPENTIN
     Dosage: TAKE 1 CAPSULE(S) EVERY DAY BY ORAL ROUTE IN THE MORNING
     Route: 048
  10. GABAPENTIN [Concomitant]
     Active Substance: GABAPENTIN
     Dosage: TAKE 1 CAPSULE(S) 3 TIMES A DAY BY ORAL ROUTE FOR 30 DAYS.
     Route: 048
  11. HYDROCHLOROTHIAZIDE [Concomitant]
     Active Substance: HYDROCHLOROTHIAZIDE
     Dosage: TAKE 1 TABLET(S) EVERY DAY BY ORAL ROUTE
     Route: 048
  12. LINZESS [Concomitant]
     Active Substance: LINACLOTIDE
     Dosage: TAKE 1 TABLET BY MOUTH DAILY
     Route: 048
  13. METFORMIN [Concomitant]
     Active Substance: METFORMIN HYDROCHLORIDE
  14. NALOXONE [Concomitant]
     Active Substance: NALOXONE
     Indication: Eosinophilia myalgia syndrome
     Dosage: 1 ACTUATION IN ONE NOSTRIL IF OVERDOSE. MAY REPEAT DOSE IN ALTERNATE NOSTRILS EVERY 2-3 MINUTES UNTI
     Route: 045
  15. PANTOPRAZOLE [Concomitant]
     Active Substance: PANTOPRAZOLE
     Dosage: TAKE 1 TABLET(S) EVERY DAY BY ORAL ROUTE FOR 30 DAYS.
     Route: 048
  16. ROPINIROLE [Concomitant]
     Active Substance: ROPINIROLE
  17. SUCRALFATE [Concomitant]
     Active Substance: SUCRALFATE
  18. SYMBICORT [Concomitant]
     Active Substance: BUDESONIDE\FORMOTEROL FUMARATE DIHYDRATE
     Dosage: SYMBICORT 160 MCG-4.5 MCG/ACTUATION HFA AEROSOL INHALER: INHALE 2 PUFF(S) TWICE A DAY BY INHALATION

REACTIONS (3)
  - Pyrexia [Recovered/Resolved]
  - Lip pain [Unknown]
  - Oral pain [Unknown]
